FAERS Safety Report 4452870-9 (Version None)
Quarter: 2004Q3

REPORT INFORMATION
  Report Type: 
  Country: None (occurrence: None)
  Receive Date: 20040916
  Receipt Date: 20040903
  Transmission Date: 20050211
  Serious: Yes (Hospitalization)
  Sender: FDA-Public Use
  Company Number: 2004UW18692

PATIENT
  Age: 16 Year
  Sex: Male

DRUGS (3)
  1. SEROQUEL [Suspect]
     Dosage: 600 MG HS PO
     Route: 048
  2. SEROQUEL [Suspect]
     Dosage: 900 MG ONCE PO
     Route: 048
     Dates: start: 20040902, end: 20040902
  3. ERYTHROMYCIN [Suspect]
     Dosage: 333 MG QD

REACTIONS (6)
  - ACCIDENTAL OVERDOSE [None]
  - DEPRESSED LEVEL OF CONSCIOUSNESS [None]
  - DRUG INTERACTION [None]
  - HYPOTENSION [None]
  - MEDICATION ERROR [None]
  - TACHYCARDIA [None]
